FAERS Safety Report 9842852 (Version 2)
Quarter: 2014Q1

REPORT INFORMATION
  Report Type: Spontaneous
  Country: US (occurrence: US)
  Receive Date: 20140124
  Receipt Date: 20140226
  Transmission Date: 20141002
  Serious: No
  Sender: FDA-Public Use
  Company Number: US-PFIZER INC-2014022798

PATIENT
  Age: 50 Year
  Sex: Female
  Weight: 61.22 kg

DRUGS (2)
  1. SERTRALINE HCL [Suspect]
     Indication: ANXIETY
     Dosage: 150 MG, DAILY (BY CRUSHING THE TABLET)
     Dates: start: 201305
  2. SERTRALINE HCL [Suspect]
     Indication: PANIC ATTACK

REACTIONS (3)
  - Dysphagia [Unknown]
  - Product coating issue [Unknown]
  - Wrong technique in drug usage process [Unknown]
